FAERS Safety Report 11076815 (Version 2)
Quarter: 2015Q2

REPORT INFORMATION
  Report Type: Report from Study
  Country: DE (occurrence: DE)
  Receive Date: 20150429
  Receipt Date: 20150515
  Transmission Date: 20150821
  Serious: Yes (Death)
  Sender: FDA-Public Use
  Company Number: DE-ABBVIE-15P-062-1383177-00

PATIENT
  Age: 74 Year
  Sex: Male

DRUGS (1)
  1. DUODOPA [Suspect]
     Active Substance: CARBIDOPA\LEVODOPA
     Indication: PARKINSON^S DISEASE
     Dosage: MD: 0 ML; CRD: 1.6 ML/H; ED: 1.5 ML
     Route: 050
     Dates: start: 20110223

REACTIONS (4)
  - Death [Fatal]
  - Unintentional medical device removal [Unknown]
  - Dysphagia [Unknown]
  - Aspiration [Fatal]

NARRATIVE: CASE EVENT DATE: 20150427
